FAERS Safety Report 7684332-X (Version None)
Quarter: 2011Q3

REPORT INFORMATION
  Report Type: 
  Country: None (occurrence: None)
  Receive Date: 20110815
  Receipt Date: 20110809
  Transmission Date: 20111222
  Serious: Yes (Life-Threatening, Hospitalization)
  Sender: FDA-Public Use
  Company Number: JP-BRISTOL-MYERS SQUIBB COMPANY-15932569

PATIENT
  Age: 57 Year
  Sex: Female
  Weight: 51 kg

DRUGS (3)
  1. METHOTREXATE [Suspect]
     Route: 048
  2. ORENCIA [Suspect]
     Indication: MUSCULOSKELETAL PAIN
     Route: 041
     Dates: start: 20110510
  3. PREDNISOLONE [Suspect]

REACTIONS (2)
  - INTERSTITIAL LUNG DISEASE [None]
  - PNEUMOCYSTIS JIROVECI PNEUMONIA [None]
